FAERS Safety Report 21504136 (Version 1)
Quarter: 2022Q4

REPORT INFORMATION
  Report Type: Other
  Country: CN (occurrence: CN)
  Receive Date: 20221025
  Receipt Date: 20221025
  Transmission Date: 20230113
  Serious: Yes (Other)
  Sender: FDA-Public Use
  Company Number: CN-Blueprint Medicines Corporation-LT-CN-2022-003085

PATIENT
  Age: 55 Year
  Sex: Female

DRUGS (8)
  1. AYVAKIT [Suspect]
     Active Substance: AVAPRITINIB
     Indication: Gastrointestinal stromal tumour
     Route: 065
     Dates: start: 20211012
  2. AYVAKIT [Suspect]
     Active Substance: AVAPRITINIB
     Route: 065
  3. AYVAKIT [Suspect]
     Active Substance: AVAPRITINIB
     Route: 048
     Dates: start: 20220112
  4. SUNITINIB [Suspect]
     Active Substance: SUNITINIB
     Indication: Gastrointestinal stromal tumour
     Route: 065
     Dates: start: 202009
  5. SUNITINIB [Suspect]
     Active Substance: SUNITINIB
     Route: 065
     Dates: start: 202108
  6. SUNITINIB [Suspect]
     Active Substance: SUNITINIB
     Route: 065
     Dates: start: 20220112
  7. RIPRETINIB [Suspect]
     Active Substance: RIPRETINIB
     Indication: Gastrointestinal stromal tumour
     Route: 065
     Dates: start: 202108
  8. RIPRETINIB [Suspect]
     Active Substance: RIPRETINIB
     Route: 065

REACTIONS (8)
  - Retinal haemorrhage [Unknown]
  - Leukopenia [Unknown]
  - Adverse event [Unknown]
  - Face oedema [Unknown]
  - Oedema peripheral [Unknown]
  - Diarrhoea [Unknown]
  - Palmar-plantar erythrodysaesthesia syndrome [Unknown]
  - Disease progression [Unknown]
